FAERS Safety Report 21551374 (Version 5)
Quarter: 2022Q4

REPORT INFORMATION
  Report Type: Report from Study
  Country: US (occurrence: US)
  Receive Date: 20221103
  Receipt Date: 20221219
  Transmission Date: 20230113
  Serious: Yes (Hospitalization, Other)
  Sender: FDA-Public Use
  Company Number: US-JAZZ-2022-US-032746

PATIENT
  Age: 68 Year
  Sex: Female
  Weight: 125.9 kg

DRUGS (35)
  1. LURBINECTEDIN [Suspect]
     Active Substance: LURBINECTEDIN
     Indication: Small cell lung cancer extensive stage
     Dosage: 7 MILLIGRAM, 1 IN 21 DAYS
     Route: 042
     Dates: start: 20220928
  2. LURBINECTEDIN [Suspect]
     Active Substance: LURBINECTEDIN
     Dosage: 7 MILLIGRAM, (3.2 MG/M2,1 IN 3 WK)
     Route: 042
     Dates: end: 20221019
  3. ATEZOLIZUMAB [Suspect]
     Active Substance: ATEZOLIZUMAB
     Indication: Small cell lung cancer extensive stage
     Dosage: 1200 MILLIGRAM, 1 IN 21 DAYS
     Route: 042
     Dates: start: 20220706, end: 20221019
  4. CARBOPLATIN [Suspect]
     Active Substance: CARBOPLATIN
     Indication: Small cell lung cancer extensive stage
     Dosage: 788 MILLIGRAM, 1 IN 3 WK
     Route: 042
     Dates: start: 20220706, end: 20220906
  5. ETOPOSIDE [Suspect]
     Active Substance: ETOPOSIDE
     Indication: Small cell lung cancer extensive stage
     Dosage: 218 MILLIGRAM
     Route: 042
     Dates: start: 20220706, end: 20220908
  6. ADDERALL [Concomitant]
     Active Substance: AMPHETAMINE ASPARTATE\AMPHETAMINE SULFATE\DEXTROAMPHETAMINE SACCHARATE\DEXTROAMPHETAMINE SULFATE
     Dosage: 500 MICROGRAM, 1 IN 21 DAYS
     Dates: start: 20220930
  7. KEFLEX [Concomitant]
     Active Substance: CEPHALEXIN
     Dosage: 500 MILLIGRAM, BID
     Dates: start: 20220928
  8. LASIX [Concomitant]
     Active Substance: FUROSEMIDE
     Indication: Oedema peripheral
     Dosage: 40 MILLIGRAM, BID
     Dates: start: 20220928
  9. LASIX [Concomitant]
     Active Substance: FUROSEMIDE
     Indication: Oedema
     Dosage: 40 MILLIGRAM, QD
     Dates: start: 20220722, end: 20220927
  10. LASIX [Concomitant]
     Active Substance: FUROSEMIDE
     Dosage: 40 MILLIGRAM, BID
     Dates: start: 20220708, end: 20220718
  11. LASIX [Concomitant]
     Active Substance: FUROSEMIDE
     Dosage: 40 UNK
     Dates: start: 20220707
  12. HUMAN RED BLOOD CELL [Concomitant]
     Active Substance: HUMAN RED BLOOD CELL
     Indication: Anaemia
     Dosage: UNK
     Dates: start: 20220923, end: 20220923
  13. ZITHROMAX [Concomitant]
     Active Substance: AZITHROMYCIN DIHYDRATE
     Indication: Cough
     Dosage: 250 MILLIGRAM
     Route: 048
     Dates: start: 20220902, end: 20220906
  14. PREDNISONE [Concomitant]
     Active Substance: PREDNISONE
     Indication: Cough
     Dosage: 10 MILLIGRAM, QD
     Route: 048
     Dates: start: 20220902
  15. NEULASTA [Concomitant]
     Active Substance: PEGFILGRASTIM
     Indication: Neutropenia
     Dosage: 6 MILLIGRAM, 1 IN 3 WEEK
     Route: 058
     Dates: start: 20220729
  16. ONDANSETRON [Concomitant]
     Active Substance: ONDANSETRON
     Indication: Nausea
     Dosage: 8 MILLIGRAM, 1IN 8 HOURS
     Route: 048
     Dates: start: 20220708
  17. COMPAZINE [Concomitant]
     Active Substance: PROCHLORPERAZINE MALEATE
     Indication: Nausea
     Dosage: 10 MILLIGRAM, 1 IN 6 HOURS
     Route: 048
     Dates: start: 20220708
  18. EFFEXOR [Concomitant]
     Active Substance: VENLAFAXINE HYDROCHLORIDE
     Indication: Anxiety
     Dosage: 37.5 MILLIGRAM, QD
     Route: 048
     Dates: start: 20220705
  19. OMEPRAZOLE [Concomitant]
     Active Substance: OMEPRAZOLE
     Indication: Gastrooesophageal reflux disease
     Dosage: 40 MILLIGRAM
     Dates: start: 2020
  20. OXYCODONE AND ACETAMINOPHEN [Concomitant]
     Active Substance: ACETAMINOPHEN\OXYCODONE HYDROCHLORIDE
     Indication: Pain
     Dosage: 10 MILLIGRAM
     Dates: start: 20220624
  21. MS CONTIN [Concomitant]
     Active Substance: MORPHINE SULFATE
     Indication: Pain
     Dosage: 15 MILLIGRAM, QD
     Route: 048
     Dates: start: 20220624, end: 20220718
  22. MS CONTIN [Concomitant]
     Active Substance: MORPHINE SULFATE
     Dosage: 30 MILLIGRAM, BID
     Route: 048
     Dates: start: 20220630
  23. GABAPENTIN [Concomitant]
     Active Substance: GABAPENTIN
     Indication: Pain
     Dosage: 300 MILLIGRAM, TID
     Route: 048
     Dates: start: 20220706
  24. METHYLPREDNISOLONE [Concomitant]
     Active Substance: METHYLPREDNISOLONE
     Dosage: 4 MILLIGRAM
     Dates: start: 20220621, end: 20220626
  25. XANAX [Concomitant]
     Active Substance: ALPRAZOLAM
     Dosage: 05 MILLIGRAM
     Dates: start: 20220621, end: 20220630
  26. XANAX [Concomitant]
     Active Substance: ALPRAZOLAM
     Dosage: 1 UNK
     Dates: start: 20220630
  27. FISH OIL [Concomitant]
     Active Substance: FISH OIL
     Dosage: FISH OIL 360MG-144 MG-216 MG-1200 MG CAPSULE AS SUPPLEMENT
     Route: 048
     Dates: start: 20210615
  28. PROMETHAZINE WITH CODEINE [Concomitant]
     Active Substance: CODEINE PHOSPHATE\PROMETHAZINE HYDROCHLORIDE
     Indication: Cough
     Dosage: UNK
     Route: 048
     Dates: start: 1972
  29. LIDOCAINE\PRILOCAINE [Concomitant]
     Active Substance: LIDOCAINE\PRILOCAINE
     Dosage: UNK
     Dates: start: 20201228
  30. BREO ELLIPTA [Concomitant]
     Active Substance: FLUTICASONE FUROATE\VILANTEROL TRIFENATATE
     Indication: Asthma
     Dosage: UNK, PRN
     Dates: start: 2018
  31. VITAMIN D3 [Concomitant]
     Active Substance: CHOLECALCIFEROL
     Dosage: 100 MICROGRAM
     Route: 048
     Dates: start: 20201208
  32. LEVOXYL [Concomitant]
     Active Substance: LEVOTHYROXINE SODIUM
     Indication: Hypothyroidism
     Dosage: 75 MICROGRAM
     Route: 048
     Dates: start: 1987
  33. VITAMIN C [Concomitant]
     Active Substance: ASCORBIC ACID
     Dosage: 100 MILLIGRAM
     Route: 048
     Dates: start: 20201208
  34. PROVENTIL HFA [SALBUTAMOL] [Concomitant]
     Indication: Asthma
     Dosage: UNK
     Dates: start: 2018
  35. IBUPROFEN [Concomitant]
     Active Substance: IBUPROFEN
     Indication: Pain
     Dosage: 800 MILLIGRAM, 1 IN 1 AS REQUIRED
     Route: 048
     Dates: start: 2021

REACTIONS (3)
  - Asthma [Recovered/Resolved]
  - Dyspnoea [Not Recovered/Not Resolved]
  - Fall [Not Recovered/Not Resolved]

NARRATIVE: CASE EVENT DATE: 20221002
